FAERS Safety Report 9052586 (Version 2)
Quarter: 2013Q1

REPORT INFORMATION
  Report Type: Spontaneous
  Country: US (occurrence: US)
  Receive Date: 20130207
  Receipt Date: 20130308
  Transmission Date: 20140127
  Serious: No
  Sender: FDA-Public Use
  Company Number: US-PFIZER INC-2012318179

PATIENT
  Age: 55 Year
  Sex: Female

DRUGS (4)
  1. ENBREL [Suspect]
     Indication: RHEUMATOID ARTHRITIS
     Dosage: 50 MG, WEEKLY
     Dates: start: 20071201
  2. METHOTREXATE SODIUM [Suspect]
     Indication: PRODUCT USED FOR UNKNOWN INDICATION
     Dosage: UNK
     Dates: start: 2012
  3. PREDNISONE [Concomitant]
     Indication: PRODUCT USED FOR UNKNOWN INDICATION
     Dosage: UNK
  4. PREDNISONE [Concomitant]
     Dosage: UNK

REACTIONS (19)
  - Skin lesion [Recovered/Resolved]
  - Arthralgia [Not Recovered/Not Resolved]
  - Joint stiffness [Not Recovered/Not Resolved]
  - Joint swelling [Recovered/Resolved]
  - Fatigue [Recovered/Resolved]
  - Psoriasis [Recovered/Resolved]
  - Scab [Not Recovered/Not Resolved]
  - Pain in extremity [Not Recovered/Not Resolved]
  - Back pain [Not Recovered/Not Resolved]
  - Musculoskeletal stiffness [Not Recovered/Not Resolved]
  - Skin discolouration [Not Recovered/Not Resolved]
  - Arthralgia [Recovered/Resolved]
  - Skin hyperpigmentation [Not Recovered/Not Resolved]
  - Liver disorder [Recovered/Resolved]
  - Blister [Recovered/Resolved]
  - Pain [Recovered/Resolved]
  - Furuncle [Recovered/Resolved]
  - Pruritus [Recovered/Resolved]
  - Streptococcal infection [Recovered/Resolved]
